FAERS Safety Report 4296371-X (Version None)
Quarter: 2004Q1

REPORT INFORMATION
  Report Type: 
  Country: None (occurrence: None)
  Receive Date: 20040213
  Receipt Date: 20040213
  Transmission Date: 20041129
  Serious: Yes (Hospitalization)
  Sender: FDA-Public Use
  Company Number: None

PATIENT
  Sex: Male

DRUGS (5)
  1. INSULIN [Suspect]
     Indication: DIABETES MELLITUS
     Dosage: [PRIOR TO ADMISSION]
  2. ASPIRIN [Concomitant]
  3. COREG [Concomitant]
  4. ACCUPRIL [Concomitant]
  5. ALDACTONE [Concomitant]

REACTIONS (5)
  - AGGRESSION [None]
  - BLOOD GLUCOSE DECREASED [None]
  - CONFUSIONAL STATE [None]
  - DISORIENTATION [None]
  - MENTAL STATUS CHANGES [None]
